FAERS Safety Report 23076555 (Version 1)
Quarter: 2023Q4

REPORT INFORMATION
  Report Type: Report from Study
  Country: CA (occurrence: CA)
  Receive Date: 20231017
  Receipt Date: 20231017
  Transmission Date: 20240109
  Serious: Yes (Other)
  Sender: FDA-Public Use
  Company Number: CA-HLS-202302063

PATIENT
  Sex: Male

DRUGS (1)
  1. CLOZARIL [Suspect]
     Active Substance: CLOZAPINE
     Indication: Product used for unknown indication
     Dosage: 1 DOSE OF 12.5MG
     Route: 048
     Dates: start: 20230224, end: 20230303

REACTIONS (2)
  - Troponin increased [Unknown]
  - Dressler^s syndrome [Unknown]
